FAERS Safety Report 15895413 (Version 2)
Quarter: 2019Q1

REPORT INFORMATION
  Report Type: Spontaneous
  Country: JP (occurrence: JP)
  Receive Date: 20190131
  Receipt Date: 20190225
  Transmission Date: 20190417
  Serious: Yes (Hospitalization)
  Sender: FDA-Public Use
  Company Number: JP-ROCHE-2254032

PATIENT
  Age: 9 Year
  Weight: 27 kg

DRUGS (1)
  1. XOFLUZA [Suspect]
     Active Substance: BALOXAVIR MARBOXIL
     Indication: INFLUENZA
     Route: 048
     Dates: start: 20190117, end: 20190117

REACTIONS (4)
  - Off label use [Unknown]
  - Vomiting [Unknown]
  - Prescribed overdose [Unknown]
  - Malaise [Unknown]

NARRATIVE: CASE EVENT DATE: 20190117
